FAERS Safety Report 7676406-4 (Version None)
Quarter: 2011Q3

REPORT INFORMATION
  Report Type: 
  Country: None (occurrence: None)
  Receive Date: 20110811
  Receipt Date: 20110808
  Transmission Date: 20111222
  Serious: No
  Sender: FDA-Public Use
  Company Number: US-PFIZER INC-2011182449

PATIENT
  Sex: Female
  Weight: 72 kg

DRUGS (3)
  1. EFFEXOR XR [Suspect]
     Indication: DEPRESSION
     Dosage: 150 MG, DALIY
     Route: 048
     Dates: start: 20010101
  2. EFFEXOR XR [Suspect]
     Indication: ANXIETY
     Dosage: 150 MG, EVERY OTHER DAY
     Route: 048
  3. IBUPROFEN [Suspect]
     Indication: HEADACHE
     Dosage: UNK
     Dates: start: 20110801

REACTIONS (5)
  - CIRCUMSTANCE OR INFORMATION CAPABLE OF LEADING TO MEDICATION ERROR [None]
  - HEADACHE [None]
  - AGITATION [None]
  - DISTURBANCE IN ATTENTION [None]
  - DRUG INEFFECTIVE [None]
